FAERS Safety Report 15566736 (Version 1)
Quarter: 2018Q4

REPORT INFORMATION
  Report Type: Spontaneous
  Country: FR (occurrence: FR)
  Receive Date: 20181030
  Receipt Date: 20181030
  Transmission Date: 20190205
  Serious: Yes (Hospitalization)
  Sender: FDA-Public Use
  Company Number: PHHY2018FR141029

PATIENT
  Age: 40 Year
  Sex: Male
  Weight: 63 kg

DRUGS (5)
  1. AMOXICILLINE HEXAL [Suspect]
     Active Substance: AMOXICILLIN
     Indication: PRODUCT USED FOR UNKNOWN INDICATION
     Dosage: 2 G, QD
     Route: 048
     Dates: start: 20171212, end: 20171218
  2. AUGMENTIN [Suspect]
     Active Substance: AMOXICILLIN\CLAVULANATE POTASSIUM
     Indication: PRODUCT USED FOR UNKNOWN INDICATION
     Route: 048
  3. TRIFLUCAN [Suspect]
     Active Substance: FLUCONAZOLE
     Indication: OROPHARYNGEAL CANDIDIASIS
     Route: 048
  4. ULTRA-LEVURE [Suspect]
     Active Substance: SACCHAROMYCES CEREVISIAE
     Indication: PROPHYLAXIS AGAINST DIARRHOEA
     Route: 048
  5. FUNGIZONE [Suspect]
     Active Substance: AMPHOTERICIN B
     Indication: OROPHARYNGEAL CANDIDIASIS
     Route: 048

REACTIONS (2)
  - Jaundice cholestatic [Recovered/Resolved]
  - Hepatocellular injury [Recovered/Resolved]

NARRATIVE: CASE EVENT DATE: 20180124
